FAERS Safety Report 23487515 (Version 2)
Quarter: 2024Q4

REPORT INFORMATION
  Report Type: Spontaneous
  Country: MY (occurrence: MY)
  Receive Date: 20240206
  Receipt Date: 20241227
  Transmission Date: 20250115
  Serious: Yes (Other)
  Sender: TORRENT PHARMA INC.
  Company Number: MY-TORRENT-00000369

PATIENT
  Sex: Female

DRUGS (1)
  1. TOPIRAMATE [Suspect]
     Active Substance: TOPIRAMATE
     Indication: Seizure
     Dosage: 100 MG BD
     Route: 065
     Dates: start: 20230529, end: 20230613

REACTIONS (3)
  - Product substitution issue [Unknown]
  - Seizure [Recovered/Resolved]
  - Therapy partial responder [Unknown]
